FAERS Safety Report 11968504 (Version 1)
Quarter: 2016Q1

REPORT INFORMATION
  Report Type: Spontaneous
  Country: PL (occurrence: PL)
  Receive Date: 20160128
  Receipt Date: 20160128
  Transmission Date: 20160526
  Serious: Yes (Hospitalization)
  Sender: FDA-Public Use
  Company Number: PL-HOSPIRA-3148300

PATIENT
  Age: 51 Year
  Sex: Male
  Weight: 60 kg

DRUGS (2)
  1. VINORELBINE TARTRATE. [Suspect]
     Active Substance: VINORELBINE TARTRATE
     Indication: RESPIRATORY DISORDER
     Dosage: 53.43 (UNIT NOT REPORTED)
     Route: 042
     Dates: start: 20150619, end: 20150626
  2. CISPLATINE [Suspect]
     Active Substance: CISPLATIN
     Indication: RESPIRATORY DISORDER
     Dosage: 53.43 (UNIT NOT REPORTED)
     Route: 042
     Dates: start: 20150619, end: 20150626

REACTIONS (2)
  - Leukopenia [Unknown]
  - Neutrophilia [Unknown]

NARRATIVE: CASE EVENT DATE: 20150709
